FAERS Safety Report 7071798 (Version 2)
Quarter: 2013Q1

REPORT INFORMATION
  Report Type: Spontaneous
  Country: GB (occurrence: None)
  Receive Date: 20090728
  Receipt Date: 20121220
  Transmission Date: 20140127
  Serious: Yes (Life-Threatening, Hospitalization)
  Sender: FDA-Public Use
  Company Number: 2006EU001271

PATIENT
  Age: 33 Year
  Sex: Male
  Weight: 91 kg

DRUGS (17)
  1. TACROLIMUS SYSTEMIC (TACROLIMUS) [Suspect]
     Indication: PROPHYLAXIS AGAINST TRANSPLANT REJECTION
     Route: 048
  2. DACLIZUMAB [Suspect]
     Indication: PROPHYLAXIS AGAINST TRANSPLANT REJECTION
     Route: 042
     Dates: start: 20040616, end: 20040616
  3. MYCOPHENOLATE MOFETIL [Suspect]
     Indication: PROPHYLAXIS AGAINST TRANSPLANT REJECTION
     Route: 048
     Dates: end: 20070426
  4. PREDNISONE [Suspect]
     Indication: PROPHYLAXIS AGAINST TRANSPLANT REJECTION
     Dosage: UID/QD
     Route: 048
     Dates: start: 20040618
  5. SIROLIMUS [Suspect]
     Indication: PROPHYLAXIS AGAINST TRANSPLANT REJECTION
     Dosage: UID/QD
     Route: 048
     Dates: start: 20040616, end: 20040818
  6. METHYLPREDNISOLONE [Suspect]
     Indication: PROPHYLAXIS AGAINST TRANSPLANT REJECTION
     Route: 042
     Dates: start: 20040116, end: 20040116
  7. OMEPRAZOLE [Concomitant]
  8. FLUVASTATIN [Concomitant]
  9. VALACYCLOVIR [Concomitant]
  10. METOCLOPRAMID (METOCLOPRAMIDE HYDROCHLORIDE) [Concomitant]
  11. LEVETIRACETAM [Concomitant]
  12. AMLODIPINE [Concomitant]
  13. AMPHOTERICIN B [Concomitant]
  14. DOXAZOSIN (DOXAZOSIN MESILATE) [Concomitant]
  15. METOPROLOL SUCCINATE [Concomitant]
  16. RAMIPRIL [Concomitant]
  17. SULFAMETHOXAZOLE AND TRIMETHOPRIM (SULFAMETHOXAZOLE, TRIMETHOPRIM) [Concomitant]

REACTIONS (8)
  - Septic shock [None]
  - Hernia obstructive [None]
  - Ileus [None]
  - Pneumonia pneumococcal [None]
  - Suture rupture [None]
  - Intestinal infarction [None]
  - Respiratory failure [None]
  - Blood creatinine increased [None]
